FAERS Safety Report 5082544-5 (Version None)
Quarter: 2006Q3

REPORT INFORMATION
  Report Type: 
  Country: None (occurrence: None)
  Receive Date: 20060817
  Receipt Date: 20060809
  Transmission Date: 20061208
  Serious: Yes (Other)
  Sender: FDA-Public Use
  Company Number: GR-ROCHE-459203

PATIENT
  Sex: Female

DRUGS (1)
  1. BONIVA [Suspect]
     Indication: OSTEOPOROSIS
     Dosage: FREQUENCY REPORTED AS MONTHLY.
     Route: 048

REACTIONS (6)
  - INFLUENZA LIKE ILLNESS [None]
  - MYALGIA [None]
  - NAUSEA [None]
  - PYREXIA [None]
  - SYNCOPE [None]
  - TACHYCARDIA [None]
